FAERS Safety Report 19996374 (Version 1)
Quarter: 2021Q4

REPORT INFORMATION
  Report Type: Spontaneous
  Country: GB (occurrence: GB)
  Receive Date: 20211026
  Receipt Date: 20211026
  Transmission Date: 20220303
  Serious: Yes (Other)
  Sender: FDA-Public Use
  Company Number: None

PATIENT
  Age: 57 Year
  Sex: Female
  Weight: 123 kg

DRUGS (14)
  1. NITROFURANTOIN [Suspect]
     Active Substance: NITROFURANTOIN
     Indication: Product used for unknown indication
     Dosage: 100 MILLIGRAM, BID
     Route: 048
     Dates: start: 20210930, end: 20211003
  2. CETIRIZINE [Concomitant]
     Active Substance: CETIRIZINE HYDROCHLORIDE
     Dosage: 1 DOSAGE FORM, PRN, EACH MORNING
     Dates: start: 20200320
  3. CHOLECALCIFEROL [Concomitant]
     Active Substance: CHOLECALCIFEROL
     Dosage: 2 DOSAGE FORM, QD
     Dates: start: 20200320
  4. COSMOCOL [Concomitant]
     Dosage: CONSUME THE CONTENTS OF ONE TO THREE SACHETS A ...
     Dates: start: 20180917
  5. DULOXETINE [Concomitant]
     Active Substance: DULOXETINE
     Dosage: IN THE MORNING
     Dates: start: 20200320
  6. EVOREL [Concomitant]
     Dosage: APPLY
     Dates: start: 20210805
  7. FEXOFENADINE [Concomitant]
     Active Substance: FEXOFENADINE HYDROCHLORIDE
     Indication: Pruritus
     Dosage: 1 DOSAGE FORM, QD
     Dates: start: 20210902, end: 20211002
  8. HYDROCORTISONE [Concomitant]
     Active Substance: HYDROCORTISONE
     Dosage: 1 DOSAGE FORM, BID, APPLY
     Dates: start: 20210715, end: 20210729
  9. LEVOTHYROXINE [Concomitant]
     Active Substance: LEVOTHYROXINE
     Dosage: 1 DOSAGE FORM, QD
     Dates: start: 20200320
  10. MELATONIN [Concomitant]
     Active Substance: MELATONIN
     Dosage: ONE HOUR BEFORE BEDTIME
     Route: 048
     Dates: start: 20210616
  11. NAPROXEN [Concomitant]
     Active Substance: NAPROXEN
     Dosage: 1 DOSAGE FORM, TID
     Dates: start: 20200320
  12. OMEPRAZOLE [Concomitant]
     Active Substance: OMEPRAZOLE
     Dosage: 1 DOSAGE FORM, QD
     Dates: start: 20200616
  13. OXYCODONE HYDROCHLORIDE [Concomitant]
     Active Substance: OXYCODONE HYDROCHLORIDE
     Dosage: 1 DOSAGE FORM, BID
     Dates: start: 20200722
  14. PREGABALIN [Concomitant]
     Active Substance: PREGABALIN
     Dosage: 1 EACH MORNING AND TWO AT NIGHT
     Dates: start: 20190329

REACTIONS (2)
  - Abdominal discomfort [Recovered/Resolved]
  - Nausea [Recovered/Resolved]
